FAERS Safety Report 8995891 (Version 2)
Quarter: 2013Q1

REPORT INFORMATION
  Report Type: Report from Study
  Country: US (occurrence: US)
  Receive Date: 20130103
  Receipt Date: 20130311
  Transmission Date: 20140127
  Serious: Yes (Hospitalization)
  Sender: FDA-Public Use
  Company Number: US-ABBOTT-12P-163-1028502-00

PATIENT
  Age: 27 Year
  Sex: Male

DRUGS (6)
  1. HUMIRA [Suspect]
     Indication: HIDRADENITIS
  2. PRISTIQ [Suspect]
     Indication: DEPRESSION
  3. CLINDAMYCIN 1%, KETOCONAZLONE 2%, HYDROCORTIZONE 1% [Concomitant]
     Indication: HIDRADENITIS
  4. CLONAZEPAM [Concomitant]
     Indication: PRODUCT USED FOR UNKNOWN INDICATION
     Dosage: 1/2MG IN AM, 1/2MG AT LUNCH, 1MG AT NIGHT
  5. LAMOTRIGINE [Concomitant]
     Indication: PRODUCT USED FOR UNKNOWN INDICATION
     Dosage: 2 WEEKS
  6. LAMOTRIGINE [Concomitant]
     Dosage: 2 WEEKS

REACTIONS (10)
  - Pituitary cyst [Recovering/Resolving]
  - Choking [Unknown]
  - Drooling [Unknown]
  - Convulsion [Unknown]
  - Hypersensitivity [Unknown]
  - Nausea [Unknown]
  - Vomiting [Unknown]
  - Blood prolactin increased [Unknown]
  - Pyrexia [Unknown]
  - Vitamin B12 decreased [Unknown]
